FAERS Safety Report 4530486-3 (Version None)
Quarter: 2004Q4

REPORT INFORMATION
  Report Type: 
  Country: None (occurrence: None)
  Receive Date: 20041206
  Receipt Date: 20040908
  Transmission Date: 20050328
  Serious: No
  Sender: FDA-Public Use
  Company Number: USA040977646

PATIENT
  Sex: Female

DRUGS (4)
  1. CYMBALTA [Suspect]
     Dosage: 30 MG DAY
     Dates: start: 20040101
  2. VENLAFAXINE HCL [Concomitant]
  3. MULTIVITAMIN [Concomitant]
  4. AMINO ACIDS [Concomitant]

REACTIONS (1)
  - INSOMNIA [None]
